FAERS Safety Report 8058915-1 (Version None)
Quarter: 2012Q1

REPORT INFORMATION
  Report Type: 
  Country: None (occurrence: None)
  Receive Date: 20120120
  Receipt Date: 20110927
  Transmission Date: 20120608
  Serious: No
  Sender: FDA-Public Use
  Company Number: US-BRISTOL-MYERS SQUIBB COMPANY-16106783

PATIENT
  Age: 69 Year
  Sex: Female

DRUGS (1)
  1. YERVOY [Suspect]
     Dosage: 3 DOSES
     Dates: start: 20110719

REACTIONS (4)
  - FATIGUE [None]
  - ASTHENIA [None]
  - HYPONATRAEMIA [None]
  - PERFORMANCE STATUS DECREASED [None]
